FAERS Safety Report 13898985 (Version 1)
Quarter: 2017Q3

REPORT INFORMATION
  Report Type: Spontaneous
  Country: US (occurrence: US)
  Receive Date: 20170823
  Receipt Date: 20170823
  Transmission Date: 20171127
  Serious: No
  Sender: FDA-Public Use
  Company Number: None

PATIENT
  Age: 65 Year
  Sex: Male
  Weight: 78.75 kg

DRUGS (2)
  1. METFORMIN [Suspect]
     Active Substance: METFORMIN HYDROCHLORIDE
     Dosage: ?          QUANTITY:1 TABLET(S);?TWICE A DAY ORAL
     Route: 048
     Dates: start: 20170616, end: 20170730
  2. MULTI VITAMIN [Concomitant]
     Active Substance: VITAMINS

REACTIONS (4)
  - Infection [None]
  - Urethritis [None]
  - Dysuria [None]
  - Inflammation [None]

NARRATIVE: CASE EVENT DATE: 20170730
